FAERS Safety Report 8619151-0 (Version None)
Quarter: 2012Q3

REPORT INFORMATION
  Report Type: 
  Country: None (occurrence: None)
  Receive Date: 20120824
  Receipt Date: 20120821
  Transmission Date: 20120928
  Serious: Yes (Other)
  Sender: FDA-Public Use
  Company Number: PHHY2012DE055371

PATIENT
  Sex: Male

DRUGS (8)
  1. ASPIRIN [Concomitant]
     Route: 048
  2. DIOVAN [Suspect]
     Indication: HYPERTENSION
     Dosage: 0.5 DF, BID
     Route: 048
  3. BISOPROLOL FUMARATE [Concomitant]
     Route: 048
  4. LEVOTHYROXINE SODIUM [Concomitant]
     Route: 048
  5. DIGOXIN [Concomitant]
     Dosage: 0.2 MG, QD
     Route: 048
  6. ATORVASTATIN CALCIUM [Concomitant]
     Route: 048
  7. EZETIMIBE [Concomitant]
     Route: 048
  8. Q10 [Concomitant]

REACTIONS (5)
  - SOMNOLENCE [None]
  - FATIGUE [None]
  - BLOOD PRESSURE INCREASED [None]
  - PANCREATIC CYST [None]
  - LIPASE INCREASED [None]
